FAERS Safety Report 8495062-9 (Version None)
Quarter: 2012Q3

REPORT INFORMATION
  Report Type: 
  Country: None (occurrence: None)
  Receive Date: 20120709
  Receipt Date: 20120629
  Transmission Date: 20120928
  Serious: Yes (Hospitalization, Other)
  Sender: FDA-Public Use
  Company Number: US-BAYER-2012-064984

PATIENT
  Age: 71 Year
  Sex: Male

DRUGS (16)
  1. NORVASC [Concomitant]
     Dosage: UNK
     Dates: start: 20110324
  2. LASIX [Concomitant]
     Dosage: UNK
     Dates: start: 20080801
  3. EFFEXOR [Concomitant]
     Dosage: UNK
     Dates: start: 20110314
  4. IRON SULFATETHIAMIN COMPOUND TAB [Concomitant]
     Dosage: UNK
     Dates: start: 20100401
  5. PLACEBO [Suspect]
     Indication: HEPATIC NEOPLASM MALIGNANT
     Dosage: UNK
     Route: 048
     Dates: start: 20110324, end: 20110527
  6. ATENOLOL [Concomitant]
     Dosage: UNK
     Dates: start: 20081201
  7. SORAFENIB (RAF KINASE INHIBITOR) [Suspect]
     Indication: HEPATIC NEOPLASM MALIGNANT
     Dosage: 800 MG, QD
     Route: 048
     Dates: start: 20110324, end: 20110527
  8. TEKTURNA [Concomitant]
     Dosage: UNK
     Dates: start: 20090801
  9. FLOMAX [Concomitant]
     Dosage: UNK
     Dates: start: 20101201
  10. OMEPRAZOLE [Concomitant]
     Dosage: UNK
     Dates: start: 20100401
  11. POTASSIUM CHLORIDE [Concomitant]
     Dosage: UNK
     Dates: start: 20090101
  12. GLIMEPIRIDE [Concomitant]
     Dosage: UNK
     Dates: start: 20080101
  13. ACTOS [Concomitant]
     Dosage: UNK
     Dates: start: 20091201
  14. PROZAC [Concomitant]
     Dosage: UNK
     Dates: start: 20110401
  15. FISH OIL [Concomitant]
     Dosage: UNK
     Dates: start: 20090401
  16. LISINOPRIL [Concomitant]
     Dosage: UNK
     Dates: start: 20091201

REACTIONS (2)
  - RENAL FAILURE [None]
  - MENTAL STATUS CHANGES [None]
